FAERS Safety Report 9760340 (Version 1)
Quarter: 2013Q4

REPORT INFORMATION
  Report Type: Spontaneous
  Country: US (occurrence: US)
  Receive Date: 20131216
  Receipt Date: 20131216
  Transmission Date: 20140711
  Serious: No
  Sender: FDA-Public Use
  Company Number: US-GILEAD-2010-0029328

PATIENT
  Sex: Female
  Weight: 72.57 kg

DRUGS (14)
  1. LETAIRIS [Suspect]
     Indication: PULMONARY ARTERIAL HYPERTENSION
     Route: 048
     Dates: start: 20100316, end: 20100518
  2. CENTRUM ULTRA WOMENS [Concomitant]
  3. LASIX [Concomitant]
  4. POTASSIUM [Concomitant]
  5. IBU [Concomitant]
  6. NAPRELAN [Concomitant]
  7. ASTELIN [Concomitant]
  8. CYCLOBENZAPRINE [Concomitant]
  9. LIPITOR [Concomitant]
  10. OMEPRAZOLE [Concomitant]
  11. FEXOFENADINE [Concomitant]
  12. HYDROXYCHLOROQUINE [Concomitant]
  13. METOPROLOL SUCC ER [Concomitant]
  14. HYDROCODONE-APAP [Concomitant]

REACTIONS (1)
  - Local swelling [Unknown]
